FAERS Safety Report 8422198-0 (Version None)
Quarter: 2012Q2

REPORT INFORMATION
  Report Type: 
  Country: None (occurrence: None)
  Receive Date: 20120608
  Receipt Date: 20120604
  Transmission Date: 20120825
  Serious: Yes (Other)
  Sender: FDA-Public Use
  Company Number: US-CELGENEUS-163-21880-12050469

PATIENT
  Sex: Female

DRUGS (20)
  1. REVLIMID [Suspect]
     Dosage: 15 MILLIGRAM
     Route: 048
     Dates: start: 20120501
  2. LISINOPRIL [Concomitant]
     Route: 065
  3. COMBIVENT [Concomitant]
     Route: 065
  4. SPIRIVA [Concomitant]
     Route: 065
  5. TOPROL-XL [Concomitant]
     Route: 065
  6. PLAVIX [Concomitant]
     Route: 065
  7. REVLIMID [Suspect]
     Indication: MULTIPLE MYELOMA
     Dosage: 25 MILLIGRAM
     Route: 048
     Dates: start: 20120327
  8. ACETAMINOPHEN [Concomitant]
     Route: 065
  9. K-TAB [Concomitant]
     Route: 065
  10. THEOPHYLLINE [Concomitant]
     Route: 065
  11. TRAMADOL HCL [Concomitant]
     Route: 065
  12. HYTRIN [Concomitant]
     Route: 065
  13. NITROGLYCERIN [Concomitant]
     Route: 065
  14. NIASPAN [Concomitant]
     Route: 065
  15. NOVOLOG [Concomitant]
     Route: 065
  16. ALDACTONE [Concomitant]
     Route: 065
  17. ASPIRIN [Concomitant]
     Route: 065
  18. LASIX [Concomitant]
     Route: 065
  19. TEKTURNA [Concomitant]
     Route: 065
  20. SYMBICORT [Concomitant]
     Route: 065

REACTIONS (5)
  - DYSPNOEA [None]
  - HYPERGLYCAEMIA [None]
  - ANAEMIA [None]
  - INFLUENZA [None]
  - GASTROINTESTINAL DISORDER [None]
